FAERS Safety Report 24400145 (Version 1)
Quarter: 2024Q4

REPORT INFORMATION
  Report Type: Other
  Country: GB (occurrence: GB)
  Receive Date: 20241005
  Receipt Date: 20241005
  Transmission Date: 20250115
  Serious: Yes (Other)
  Sender: MACLEODS
  Company Number: None

PATIENT

DRUGS (2)
  1. LEVOFLOXACIN [Suspect]
     Active Substance: LEVOFLOXACIN
     Indication: Orchitis
     Dosage: 500MG ONE TABLET TWICE A DAY
     Route: 065
     Dates: start: 20240919, end: 20240923
  2. OFLOXACIN [Concomitant]
     Active Substance: OFLOXACIN
     Indication: Adverse drug reaction
     Route: 065
     Dates: start: 20240909, end: 20240918

REACTIONS (12)
  - Cold sweat [Recovered/Resolved]
  - Chest discomfort [Recovering/Resolving]
  - Medication error [Unknown]
  - Muscular weakness [Recovered/Resolved]
  - Chest pain [Recovering/Resolving]
  - Dyspnoea [Recovered/Resolved]
  - Dizziness [Recovered/Resolved]
  - Nausea [Recovering/Resolving]
  - Confusional state [Recovered/Resolved]
  - Vision blurred [Recovered/Resolved]
  - Dysgeusia [Recovering/Resolving]
  - Tendon pain [Recovering/Resolving]
